FAERS Safety Report 5307744-8 (Version None)
Quarter: 2007Q2

REPORT INFORMATION
  Report Type: 
  Country: None (occurrence: None)
  Receive Date: 20070418
  Receipt Date: 20070411
  Transmission Date: 20071010
  Serious: Yes (Hospitalization)
  Sender: FDA-Public Use
  Company Number: S07-USA-01551-01

PATIENT
  Age: 38 Year
  Sex: Male

DRUGS (9)
  1. LEXAPRO [Suspect]
     Indication: DEPRESSION
     Dosage: 20 MG QD PO
     Route: 048
     Dates: start: 20070302
  2. LEXAPRO [Suspect]
     Indication: PANIC ATTACK
     Dosage: 20 MG QD PO
     Route: 048
     Dates: start: 20070302
  3. LEXAPRO [Suspect]
     Indication: DEPRESSION
     Dosage: 10 MG QD PO
     Route: 048
     Dates: start: 20070220, end: 20070301
  4. LEXAPRO [Suspect]
     Indication: PANIC ATTACK
     Dosage: 10 MG QD PO
     Route: 048
     Dates: start: 20070220, end: 20070301
  5. LEXAPRO [Suspect]
     Indication: DEPRESSION
     Dates: start: 20070410, end: 20070410
  6. LEXAPRO [Suspect]
     Indication: PANIC ATTACK
     Dates: start: 20070410, end: 20070410
  7. XANAX [Suspect]
     Indication: PANIC ATTACK
     Dosage: 0.25 MG PRN PO
     Route: 048
  8. XANAX [Suspect]
     Dates: start: 20070410, end: 20070410
  9. ALCOHOL [Suspect]
     Dates: start: 20070410, end: 20070410

REACTIONS (3)
  - INTENTIONAL OVERDOSE [None]
  - LOSS OF CONSCIOUSNESS [None]
  - SUICIDE ATTEMPT [None]
